FAERS Safety Report 12571533 (Version 1)
Quarter: 2016Q3

REPORT INFORMATION
  Report Type: Other
  Country: US (occurrence: US)
  Receive Date: 20160719
  Receipt Date: 20160719
  Transmission Date: 20161109
  Serious: Yes (Hospitalization)
  Sender: FDA-Public Use
  Company Number: US-ACORDA-ACO_126178_2016

PATIENT

DRUGS (1)
  1. AMPYRA [Suspect]
     Active Substance: DALFAMPRIDINE
     Indication: PRODUCT USED FOR UNKNOWN INDICATION
     Dosage: UNK
     Route: 065

REACTIONS (7)
  - Decubitus ulcer [Unknown]
  - Acid base balance abnormal [Unknown]
  - Muscle spasms [Unknown]
  - Heart rate increased [Unknown]
  - Vomiting [Unknown]
  - Faeces discoloured [Unknown]
  - Blood pressure decreased [Unknown]
